FAERS Safety Report 6689800-5 (Version None)
Quarter: 2010Q2

REPORT INFORMATION
  Report Type: 
  Country: None (occurrence: None)
  Receive Date: 20100421
  Receipt Date: 20100419
  Transmission Date: 20101027
  Serious: Yes (Life-Threatening)
  Sender: FDA-Public Use
  Company Number: AU-B.I. PHARMACEUTICALS,INC./RIDGEFIELD-2010-AU-00310AU

PATIENT
  Sex: Male
  Weight: 67 kg

DRUGS (2)
  1. CATAPRES [Suspect]
     Route: 048
  2. RISPERIDONE [Suspect]

REACTIONS (1)
  - GRAND MAL CONVULSION [None]
